FAERS Safety Report 14116413 (Version 7)
Quarter: 2022Q3

REPORT INFORMATION
  Report Type: Report from Study
  Country: CO (occurrence: CO)
  Receive Date: 20171023
  Receipt Date: 20220630
  Transmission Date: 20221027
  Serious: Yes (Hospitalization, Other)
  Sender: FDA-Public Use
  Company Number: PHHY2016CO000756

PATIENT
  Age: 47 Year
  Sex: Male
  Weight: 70 kg

DRUGS (7)
  1. AFINITOR [Suspect]
     Active Substance: EVEROLIMUS
     Indication: Breast cancer
     Dosage: 10 MG, QD
     Route: 048
     Dates: start: 20150520, end: 201701
  2. AFINITOR [Suspect]
     Active Substance: EVEROLIMUS
     Indication: Renal cancer
     Dosage: 5 MG, BID
     Route: 048
     Dates: start: 201707
  3. AFINITOR [Suspect]
     Active Substance: EVEROLIMUS
     Indication: Neuroendocrine tumour
  4. SANDOSTATIN LAR DEPOT [Suspect]
     Active Substance: OCTREOTIDE ACETATE
     Indication: Neuroendocrine tumour
     Dosage: 30 MG, QMO (AMPOULE)
     Route: 030
     Dates: start: 20150520, end: 201701
  5. SANDOSTATIN LAR DEPOT [Suspect]
     Active Substance: OCTREOTIDE ACETATE
     Dosage: UNK UNK, QMO
     Route: 030
     Dates: start: 201707
  6. SANDOSTATIN LAR DEPOT [Suspect]
     Active Substance: OCTREOTIDE ACETATE
  7. LANTUS [Concomitant]
     Active Substance: INSULIN GLARGINE
     Indication: Product used for unknown indication
     Dosage: UNK
     Route: 065

REACTIONS (12)
  - Diabetes mellitus [Unknown]
  - Blood glucose increased [Unknown]
  - Disease recurrence [Unknown]
  - Oral disorder [Unknown]
  - Oral mucosal exfoliation [Unknown]
  - Drug intolerance [Unknown]
  - Oropharyngeal plaque [Unknown]
  - Rash [Unknown]
  - Influenza [Unknown]
  - Dry skin [Unknown]
  - Pyrexia [Unknown]
  - Diarrhoea [Unknown]

NARRATIVE: CASE EVENT DATE: 20170918
